FAERS Safety Report 13005597 (Version 2)
Quarter: 2017Q1

REPORT INFORMATION
  Report Type: Spontaneous
  Country: US (occurrence: US)
  Receive Date: 20161207
  Receipt Date: 20170127
  Transmission Date: 20170428
  Serious: No
  Sender: FDA-Public Use
  Company Number: US-JNJFOC-20161120387

PATIENT
  Age: 4 Year
  Sex: Female

DRUGS (1)
  1. REMICADE [Suspect]
     Active Substance: INFLIXIMAB
     Indication: CROHN^S DISEASE
     Route: 042

REACTIONS (7)
  - Infusion related reaction [Unknown]
  - Product use issue [Unknown]
  - Urticaria [Unknown]
  - Drug level decreased [Unknown]
  - Oral mucosal eruption [Unknown]
  - Drug specific antibody present [Unknown]
  - Off label use [Unknown]
